FAERS Safety Report 11319508 (Version 1)
Quarter: 2015Q3

REPORT INFORMATION
  Report Type: Spontaneous
  Country: JP (occurrence: JP)
  Receive Date: 20150729
  Receipt Date: 20150729
  Transmission Date: 20151125
  Serious: Yes (Other)
  Sender: FDA-Public Use
  Company Number: PHJP2015JP011282

PATIENT
  Age: 66 Year
  Sex: Female

DRUGS (2)
  1. AFINITOR [Suspect]
     Active Substance: EVEROLIMUS
     Indication: PANCREATIC NEUROENDOCRINE TUMOUR
     Dosage: 10 MG, QD
     Route: 048
     Dates: start: 201305
  2. AFINITOR [Suspect]
     Active Substance: EVEROLIMUS
     Dosage: QOD
     Route: 048

REACTIONS (4)
  - White blood cell count decreased [Unknown]
  - Neutropenia [Unknown]
  - Interstitial lung disease [Recovered/Resolved]
  - Bone marrow failure [Recovered/Resolved]

NARRATIVE: CASE EVENT DATE: 201306
